FAERS Safety Report 5750414-2 (Version None)
Quarter: 2008Q2

REPORT INFORMATION
  Report Type: 
  Country: None (occurrence: None)
  Receive Date: 20080523
  Receipt Date: 20080523
  Transmission Date: 20081010
  Serious: Yes (Other)
  Sender: FDA-Public Use
  Company Number: None

PATIENT
  Age: 77 Year
  Sex: Male
  Weight: 75.3 kg

DRUGS (1)
  1. DOBUTAMINE HCL [Suspect]
     Indication: DIAGNOSTIC PROCEDURE
     Dosage: PROGRESSIVE 10, 20  40 MCG  1 IV BOLUS
     Route: 040
     Dates: start: 20080401, end: 20080401

REACTIONS (1)
  - POST POLIO SYNDROME [None]
